FAERS Safety Report 5494607-0 (Version None)
Quarter: 2007Q4

REPORT INFORMATION
  Report Type: 
  Country: None (occurrence: None)
  Receive Date: 20071015
  Receipt Date: 20070820
  Transmission Date: 20080405
  Serious: No
  Sender: FDA-Public Use
  Company Number: 2007SP002907

PATIENT
  Age: 77 Year
  Sex: Male
  Weight: 90.7194 kg

DRUGS (8)
  1. LUNESTA [Suspect]
     Indication: INSOMNIA
     Dosage: 1 MG; PRN; ORAL, 2 MG; PRN, ORAL, 3 MG; PRN; ORAL, 4 MG; 1X; ORAL
     Route: 048
     Dates: start: 20060101, end: 20060101
  2. LUNESTA [Suspect]
     Indication: INSOMNIA
     Dosage: 1 MG; PRN; ORAL, 2 MG; PRN, ORAL, 3 MG; PRN; ORAL, 4 MG; 1X; ORAL
     Route: 048
     Dates: start: 20060101, end: 20070701
  3. LUNESTA [Suspect]
     Indication: INSOMNIA
     Dosage: 1 MG; PRN; ORAL, 2 MG; PRN, ORAL, 3 MG; PRN; ORAL, 4 MG; 1X; ORAL
     Route: 048
     Dates: start: 20070701, end: 20070701
  4. LUNESTA [Suspect]
     Indication: INSOMNIA
     Dosage: 1 MG; PRN; ORAL, 2 MG; PRN, ORAL, 3 MG; PRN; ORAL, 4 MG; 1X; ORAL
     Route: 048
     Dates: start: 20070701
  5. ATENOLOL [Concomitant]
  6. HYDROCHLOROTHIAZIDE [Concomitant]
  7. FISH OIL [Concomitant]
  8. VITAMIN CAP [Concomitant]

REACTIONS (2)
  - DRUG INEFFECTIVE [None]
  - INITIAL INSOMNIA [None]
